FAERS Safety Report 18174576 (Version 1)
Quarter: 2020Q3

REPORT INFORMATION
  Report Type: Spontaneous
  Country: US (occurrence: US)
  Receive Date: 20200820
  Receipt Date: 20200820
  Transmission Date: 20201103
  Serious: No
  Sender: FDA-Public Use
  Company Number: US-PFIZER INC-2020318219

PATIENT
  Age: 69 Year
  Sex: Female

DRUGS (4)
  1. ALDACTONE [Suspect]
     Active Substance: SPIRONOLACTONE
     Indication: PULMONARY FIBROSIS
     Dosage: UNK
  2. BUMETANIDE. [Suspect]
     Active Substance: BUMETANIDE
     Dosage: 1 MG, 2X/DAY
  3. PREDNISONE. [Suspect]
     Active Substance: PREDNISONE
     Dosage: 5 MG
  4. OFEV [Suspect]
     Active Substance: NINTEDANIB
     Indication: PULMONARY FIBROSIS
     Dosage: UNK

REACTIONS (4)
  - Off label use [Unknown]
  - Feeling abnormal [Not Recovered/Not Resolved]
  - Product use in unapproved indication [Unknown]
  - Mental status changes [Not Recovered/Not Resolved]
